FAERS Safety Report 6542731-3 (Version None)
Quarter: 2010Q1

REPORT INFORMATION
  Report Type: 
  Country: None (occurrence: None)
  Receive Date: 20100114
  Receipt Date: 20100105
  Transmission Date: 20100710
  Serious: Yes (Death, Other)
  Sender: FDA-Public Use
  Company Number: 8041127

PATIENT
  Sex: Female
  Weight: 2.5 kg

DRUGS (8)
  1. KEPPRA [Suspect]
     Indication: EPILEPSY
     Dosage: 1000 MG BID TRANSPLACENTAL, 3000 MG DAILY TRANSPLACENTAL
     Route: 064
     Dates: end: 20081107
  2. KEPPRA [Suspect]
     Indication: EPILEPSY
     Dosage: 1000 MG BID TRANSPLACENTAL, 3000 MG DAILY TRANSPLACENTAL
     Route: 064
     Dates: start: 20081107, end: 20081119
  3. TEGRETOL [Concomitant]
  4. VALIUM [Concomitant]
  5. NORCO [Concomitant]
  6. VISTARIL [Concomitant]
  7. BUSPAR [Concomitant]
  8. ZOFRAN [Concomitant]

REACTIONS (2)
  - MATERNAL DRUGS AFFECTING FOETUS [None]
  - PREMATURE BABY [None]
